FAERS Safety Report 15327109 (Version 1)
Quarter: 2018Q3

REPORT INFORMATION
  Report Type: Spontaneous
  Country: US (occurrence: US)
  Receive Date: 20180823
  Receipt Date: 20180823
  Transmission Date: 20181010
  Serious: Yes (Hospitalization)
  Sender: FDA-Public Use
  Company Number: None

PATIENT
  Age: 0 Day
  Sex: Female

DRUGS (1)
  1. AQUAMEPHYTON [Suspect]
     Active Substance: PHYTONADIONE
     Route: 030

REACTIONS (1)
  - Jaundice [None]

NARRATIVE: CASE EVENT DATE: 20171113
